FAERS Safety Report 6025194-6 (Version None)
Quarter: 2008Q4

REPORT INFORMATION
  Report Type: 
  Country: None (occurrence: None)
  Receive Date: 20081229
  Receipt Date: 20081229
  Transmission Date: 20090506
  Serious: Yes (Hospitalization)
  Sender: FDA-Public Use
  Company Number: None

PATIENT
  Age: 35 Year
  Sex: Male
  Weight: 102.0593 kg

DRUGS (2)
  1. INDOMETHACIN [Suspect]
     Indication: MYALGIA
     Dosage: 1  3 PER DAY PO
     Route: 048
     Dates: start: 20081224, end: 20081224
  2. INDOMETHACIN [Suspect]
     Indication: MYALGIA
     Dosage: 1  3 PER DAY PO
     Route: 048
     Dates: start: 20081226, end: 20081226

REACTIONS (7)
  - ANXIETY [None]
  - DIZZINESS [None]
  - DRUG HYPERSENSITIVITY [None]
  - DYSPNOEA [None]
  - FATIGUE [None]
  - FEELING ABNORMAL [None]
  - ILL-DEFINED DISORDER [None]
